FAERS Safety Report 25203574 (Version 3)
Quarter: 2025Q2

REPORT INFORMATION
  Report Type: Spontaneous
  Country: US (occurrence: US)
  Receive Date: 20250416
  Receipt Date: 20250616
  Transmission Date: 20250716
  Serious: No
  Sender: SANOFI AVENTIS
  Company Number: US-SA-2025SA109337

PATIENT
  Age: 72 Year
  Sex: Female

DRUGS (1)
  1. DUPIXENT [Suspect]
     Active Substance: DUPILUMAB
     Indication: Eczema
     Dosage: 300 MG, QOW
     Route: 058

REACTIONS (4)
  - Procedural pain [Unknown]
  - Psoriasis [Unknown]
  - Alopecia [Unknown]
  - Arthralgia [Unknown]
